FAERS Safety Report 8295828-4 (Version None)
Quarter: 2012Q2

REPORT INFORMATION
  Report Type: 
  Country: None (occurrence: None)
  Receive Date: 20120416
  Receipt Date: 20120403
  Transmission Date: 20120825
  Serious: Yes (Other)
  Sender: FDA-Public Use
  Company Number: 1254550

PATIENT
  Sex: Female
  Weight: 2.7 kg

DRUGS (2)
  1. EPIRUBICIN HYDROCHLORIDE [Suspect]
     Dosage: TRANSPLACENTAL
     Route: 064
  2. CYCLOPHOSPHAMIDE [Suspect]
     Dosage: TRANSPLACENTAL
     Route: 064

REACTIONS (7)
  - MATERNAL DRUGS AFFECTING FOETUS [None]
  - TOXICITY TO VARIOUS AGENTS [None]
  - LONG QT SYNDROME CONGENITAL [None]
  - ELECTROCARDIOGRAM QT PROLONGED [None]
  - DIASTOLIC DYSFUNCTION [None]
  - CAESAREAN SECTION [None]
  - VENTRICULAR HYPOKINESIA [None]
